FAERS Safety Report 5632072-0 (Version None)
Quarter: 2008Q1

REPORT INFORMATION
  Report Type: 
  Country: None (occurrence: None)
  Receive Date: 20080220
  Receipt Date: 20080218
  Transmission Date: 20080703
  Serious: Yes (Death, Hospitalization)
  Sender: FDA-Public Use
  Company Number: A0710261A

PATIENT
  Age: 80 Year
  Sex: Male

DRUGS (7)
  1. COREG CR [Suspect]
     Dosage: 40MG PER DAY
     Route: 048
     Dates: end: 20071010
  2. INSULIN [Concomitant]
  3. PHOSLO [Concomitant]
  4. MULTI-VITAMIN [Concomitant]
  5. ASPIRIN [Concomitant]
  6. PLAVIX [Concomitant]
  7. OXYGEN [Concomitant]

REACTIONS (1)
  - DEATH [None]
